FAERS Safety Report 16142527 (Version 1)
Quarter: 2019Q1

REPORT INFORMATION
  Report Type: Spontaneous
  Country: US (occurrence: US)
  Receive Date: 20190226
  Receipt Date: 20190226
  Transmission Date: 20190418
  Serious: Yes (Disabling)
  Sender: FDA-Public Use
  Company Number: None

PATIENT
  Age: 78 Year
  Sex: Male
  Weight: 154.22 kg

DRUGS (16)
  1. LOVAZA [Concomitant]
     Active Substance: OMEGA-3-ACID ETHYL ESTERS
  2. HUMALOG [Concomitant]
     Active Substance: INSULIN LISPRO
  3. TYLENOL [Concomitant]
     Active Substance: ACETAMINOPHEN
  4. GABAPENTIN CAPS 300MG [Suspect]
     Active Substance: GABAPENTIN
     Indication: PAIN
     Dosage: ?          QUANTITY:300 MG MILLIGRAM(S);?
     Route: 048
     Dates: start: 20180908, end: 20181219
  5. LINZESS [Concomitant]
     Active Substance: LINACLOTIDE
  6. CPAP [Concomitant]
     Active Substance: DEVICE
  7. CARVEDILO [Concomitant]
     Active Substance: CARVEDILOL
  8. PROTONICS [Concomitant]
  9. IB GUARD [Concomitant]
  10. MUCINEX [Concomitant]
     Active Substance: GUAIFENESIN
  11. TORSEMIDE. [Concomitant]
     Active Substance: TORSEMIDE
  12. ACTOS [Concomitant]
     Active Substance: PIOGLITAZONE HYDROCHLORIDE
  13. WARFARIN [Concomitant]
     Active Substance: WARFARIN
  14. TRISEBA [Concomitant]
  15. TRAZEDONE [Concomitant]
  16. ZADITOR [Concomitant]
     Active Substance: KETOTIFEN FUMARATE

REACTIONS (3)
  - Neurological symptom [None]
  - Sensory disturbance [None]
  - Feeling jittery [None]

NARRATIVE: CASE EVENT DATE: 20181101
